FAERS Safety Report 23167838 (Version 2)
Quarter: 2023Q4

REPORT INFORMATION
  Report Type: Spontaneous
  Country: US (occurrence: US)
  Receive Date: 20231109
  Receipt Date: 20231226
  Transmission Date: 20240110
  Serious: Yes (Other)
  Sender: FDA-Public Use
  Company Number: US-PFIZER INC-PV202300180540

PATIENT
  Age: 64 Year
  Sex: Female
  Weight: 67.1 kg

DRUGS (1)
  1. ZITHROMAX [Suspect]
     Active Substance: AZITHROMYCIN DIHYDRATE
     Indication: Mycobacterium abscessus infection
     Dosage: UNK

REACTIONS (2)
  - Bronchiectasis [Not Recovered/Not Resolved]
  - Lung opacity [Unknown]
